FAERS Safety Report 17320619 (Version 1)
Quarter: 2020Q1

REPORT INFORMATION
  Report Type: Other
  Country: US (occurrence: US)
  Receive Date: 20200126
  Receipt Date: 20200126
  Transmission Date: 20200409
  Serious: No
  Sender: FDA-Public Use
  Company Number: US-ACORDA-ACO_156954_2019

PATIENT
  Age: 68 Year
  Sex: Female

DRUGS (2)
  1. TYSABRI [Suspect]
     Active Substance: NATALIZUMAB
     Indication: PRODUCT USED FOR UNKNOWN INDICATION
     Dosage: UNK
     Route: 065
  2. AMPYRA [Suspect]
     Active Substance: DALFAMPRIDINE
     Indication: MULTIPLE SCLEROSIS
     Dosage: 10 MILLIGRAM, BID
     Route: 048
     Dates: start: 20170321

REACTIONS (6)
  - Head injury [Recovered/Resolved]
  - Nervousness [Not Recovered/Not Resolved]
  - Photopsia [Unknown]
  - Confusional state [Recovered/Resolved]
  - Fall [Recovered/Resolved]
  - Aura [Unknown]

NARRATIVE: CASE EVENT DATE: 20191001
